FAERS Safety Report 11288477 (Version 3)
Quarter: 2016Q2

REPORT INFORMATION
  Report Type: Spontaneous
  Country: CA (occurrence: CA)
  Receive Date: 20150721
  Receipt Date: 20160523
  Transmission Date: 20160815
  Serious: Yes (Hospitalization)
  Sender: FDA-Public Use
  Company Number: CA-PFIZER INC-2015237896

PATIENT
  Age: 75 Year
  Sex: Female

DRUGS (14)
  1. PROCHLORPERAZINE. [Concomitant]
     Active Substance: PROCHLORPERAZINE
  2. SPIRIVA [Concomitant]
     Active Substance: TIOTROPIUM BROMIDE MONOHYDRATE
  3. REVATIO [Suspect]
     Active Substance: SILDENAFIL CITRATE
     Dosage: 20 MG, 3X/DAY
     Route: 048
     Dates: start: 20140130
  4. SENOKOT [Concomitant]
     Active Substance: SENNOSIDES
  5. SPIRONOLACTONE. [Concomitant]
     Active Substance: SPIRONOLACTONE
  6. VITAMIN E [Concomitant]
     Active Substance: .ALPHA.-TOCOPHEROL
  7. TRACLEER [Concomitant]
     Active Substance: BOSENTAN
     Dosage: UNK
  8. WARFARIN [Concomitant]
     Active Substance: WARFARIN
  9. HYDROMORPH [Concomitant]
     Active Substance: HYDROMORPHONE
  10. ZAROXOLYN [Concomitant]
     Active Substance: METOLAZONE
  11. REVATIO [Suspect]
     Active Substance: SILDENAFIL CITRATE
     Indication: PULMONARY ARTERIAL HYPERTENSION
     Dosage: 20 MG, UNK
     Route: 048
     Dates: start: 20110117
  12. RANITIDINE. [Concomitant]
     Active Substance: RANITIDINE
  13. ADVAIR HFA [Concomitant]
     Active Substance: FLUTICASONE PROPIONATE\SALMETEROL XINAFOATE
  14. VENTOLIN [Concomitant]
     Active Substance: ALBUTEROL SULFATE

REACTIONS (6)
  - Hip fracture [Not Recovered/Not Resolved]
  - Dyspnoea [Recovered/Resolved]
  - Gastroenteritis viral [Recovered/Resolved]
  - Fall [Not Recovered/Not Resolved]
  - Weight increased [Recovered/Resolved]
  - Anaemia [Unknown]

NARRATIVE: CASE EVENT DATE: 20150626
